FAERS Safety Report 9056907 (Version 1)
Quarter: 2013Q1

REPORT INFORMATION
  Report Type: Report from Study
  Country: KR (occurrence: KR)
  Receive Date: 20130201
  Receipt Date: 20130201
  Transmission Date: 20140127
  Serious: Yes (Other)
  Sender: FDA-Public Use
  Company Number: KR-BAXTER-2013BAX004564

PATIENT
  Sex: 0

DRUGS (3)
  1. ENDOXAN INJ 500MG [Suspect]
     Indication: NEUROBLASTOMA
     Route: 065
  2. CARBOPLATIN [Suspect]
     Indication: NEUROBLASTOMA
     Route: 065
  3. ETOPOSIDE [Suspect]
     Indication: NEUROBLASTOMA
     Route: 065

REACTIONS (1)
  - Renal failure [Unknown]
